FAERS Safety Report 6964222-8 (Version None)
Quarter: 2010Q3

REPORT INFORMATION
  Report Type: 
  Country: None (occurrence: None)
  Receive Date: 20100903
  Receipt Date: 20100824
  Transmission Date: 20110219
  Serious: Yes (Hospitalization)
  Sender: FDA-Public Use
  Company Number: US-BIOGENIDEC-2010BI029254

PATIENT
  Age: 60 Year
  Sex: Female
  Weight: 51 kg

DRUGS (2)
  1. AVONEX [Suspect]
     Indication: MULTIPLE SCLEROSIS
     Route: 030
     Dates: start: 20000101
  2. AVONEX [Suspect]
     Route: 030

REACTIONS (6)
  - BLOOD POTASSIUM DECREASED [None]
  - DIARRHOEA [None]
  - DYSPHAGIA [None]
  - HIP FRACTURE [None]
  - NERVOUS SYSTEM DISORDER [None]
  - TOOTH ABSCESS [None]
